FAERS Safety Report 5834380-7 (Version None)
Quarter: 2008Q3

REPORT INFORMATION
  Report Type: 
  Country: None (occurrence: None)
  Receive Date: 20080805
  Receipt Date: 20080721
  Transmission Date: 20090109
  Serious: Yes (Other)
  Sender: FDA-Public Use
  Company Number: US-PFIZER INC-2008039163

PATIENT
  Sex: Female
  Weight: 81.4 kg

DRUGS (12)
  1. CHANTIX [Suspect]
     Indication: SMOKING CESSATION THERAPY
     Route: 048
  2. XANAX [Concomitant]
  3. LAMICTAL [Concomitant]
  4. PREMARIN [Concomitant]
  5. REQUIP [Concomitant]
  6. TRAMADOL HCL [Concomitant]
     Indication: PAIN
  7. TIZANIDINE HCL [Concomitant]
  8. GEODON [Concomitant]
  9. KLONOPIN [Concomitant]
  10. PROMETHAZINE [Concomitant]
  11. LORTAB [Concomitant]
  12. TOPAMAX [Concomitant]

REACTIONS (6)
  - ANXIETY [None]
  - DISTURBANCE IN ATTENTION [None]
  - DIZZINESS [None]
  - FEELING JITTERY [None]
  - SLEEP DISORDER [None]
  - VOMITING [None]
